FAERS Safety Report 16662739 (Version 2)
Quarter: 2020Q1

REPORT INFORMATION
  Report Type: Report from Study
  Country: US (occurrence: US)
  Receive Date: 20190802
  Receipt Date: 20200129
  Transmission Date: 20200409
  Serious: No
  Sender: FDA-Public Use
  Company Number: US-EXELIXIS-CABO-19018539

PATIENT
  Age: 84 Year
  Sex: Male

DRUGS (3)
  1. VALSARTAN. [Suspect]
     Active Substance: VALSARTAN
     Dosage: UNK
  2. CABOMETYX [Suspect]
     Active Substance: CABOZANTINIB S-MALATE
     Indication: RENAL CANCER
     Dosage: UNK
     Dates: start: 201812
  3. CABOMETYX [Suspect]
     Active Substance: CABOZANTINIB S-MALATE
     Indication: GENITOURINARY TRACT NEOPLASM
     Dosage: 40 MG, QD (IN MORNING WITHOUT FOOD)
     Route: 048
     Dates: start: 201901

REACTIONS (10)
  - Dysphonia [Unknown]
  - Impaired healing [Unknown]
  - Hypotension [Recovered/Resolved]
  - Dyspepsia [Not Recovered/Not Resolved]
  - Decreased appetite [Unknown]
  - Skin laceration [Not Recovered/Not Resolved]
  - Diarrhoea [Unknown]
  - Decubitus ulcer [Not Recovered/Not Resolved]
  - Fatigue [Not Recovered/Not Resolved]
  - Nausea [Not Recovered/Not Resolved]

NARRATIVE: CASE EVENT DATE: 201901
